FAERS Safety Report 8325014-0 (Version None)
Quarter: 2012Q1

REPORT INFORMATION
  Report Type: 
  Country: None (occurrence: None)
  Receive Date: 20120315
  Receipt Date: 20110429
  Transmission Date: 20120608
  Serious: No
  Sender: FDA-Public Use
  Company Number: PHHY2011US14831

PATIENT
  Age: 45 Year
  Sex: Female

DRUGS (7)
  1. XANAX [Concomitant]
  2. LORTAB [Concomitant]
  3. VITAMIN D [Concomitant]
  4. GILENYA [Suspect]
     Indication: MULTIPLE SCLEROSIS
     Dosage: 0.5 MG, QD, ORAL
     Route: 048
     Dates: start: 20110105, end: 20110211
  5. PREDNISONE [Concomitant]
  6. LIDODERM [Concomitant]
  7. LYRICA [Concomitant]

REACTIONS (4)
  - ARTHRALGIA [None]
  - ANXIETY [None]
  - BACK PAIN [None]
  - DYSPNOEA [None]
